FAERS Safety Report 23475554 (Version 1)
Quarter: 2024Q1

REPORT INFORMATION
  Report Type: Report from Study
  Country: TW (occurrence: TW)
  Receive Date: 20240204
  Receipt Date: 20240204
  Transmission Date: 20240409
  Serious: No
  Sender: FDA-Public Use
  Company Number: TW-EXELIXIS-CABO-23059823

PATIENT
  Age: 70 Year
  Sex: Male

DRUGS (1)
  1. CABOMETYX [Suspect]
     Active Substance: CABOZANTINIB S-MALATE
     Indication: Poorly differentiated thyroid carcinoma
     Dosage: 40 MG, QD
     Route: 048
     Dates: start: 202301

REACTIONS (1)
  - Toothache [Not Recovered/Not Resolved]

NARRATIVE: CASE EVENT DATE: 20230101
